FAERS Safety Report 25514943 (Version 1)
Quarter: 2025Q3

REPORT INFORMATION
  Report Type: Spontaneous
  Country: US (occurrence: US)
  Receive Date: 20250703
  Receipt Date: 20250703
  Transmission Date: 20251021
  Serious: No
  Sender: RADIUS PHARM
  Company Number: US-RADIUS HEALTH INC.-US-RADIUS-25047478

PATIENT
  Sex: Female

DRUGS (5)
  1. TYMLOS [Suspect]
     Active Substance: ABALOPARATIDE
     Indication: Osteoporosis postmenopausal
     Dosage: 80 MICROGRAM, QD
     Route: 058
     Dates: start: 20250316
  2. TYMLOS [Suspect]
     Active Substance: ABALOPARATIDE
     Dosage: 5 CLICKS ONCE A DAY
     Route: 058
     Dates: start: 2025, end: 2025
  3. TYMLOS [Suspect]
     Active Substance: ABALOPARATIDE
     Dosage: 4 CLICKS ONCE A DAY
     Route: 058
     Dates: start: 2025, end: 2025
  4. TYMLOS [Suspect]
     Active Substance: ABALOPARATIDE
     Dosage: 3 CLICKS ONCE A DAY
     Route: 058
     Dates: start: 2025, end: 2025
  5. TYMLOS [Suspect]
     Active Substance: ABALOPARATIDE
     Dosage: 4 CLICKS ONCE A DAY
     Route: 058
     Dates: start: 2025

REACTIONS (11)
  - Fatigue [Not Recovered/Not Resolved]
  - Brain fog [Not Recovered/Not Resolved]
  - Dyspnoea [Not Recovered/Not Resolved]
  - Dizziness [Not Recovered/Not Resolved]
  - Cognitive disorder [Not Recovered/Not Resolved]
  - Abdominal pain upper [Recovered/Resolved]
  - Quality of life decreased [Recovered/Resolved]
  - Blood glucose abnormal [Not Recovered/Not Resolved]
  - Memory impairment [Unknown]
  - Drug intolerance [Unknown]
  - Device use issue [Unknown]

NARRATIVE: CASE EVENT DATE: 20250101
